FAERS Safety Report 8559724-7 (Version None)
Quarter: 2012Q3

REPORT INFORMATION
  Report Type: 
  Country: None (occurrence: None)
  Receive Date: 20120802
  Receipt Date: 20120728
  Transmission Date: 20120928
  Serious: Yes (Other)
  Sender: FDA-Public Use
  Company Number: US-PFIZER INC-2012182980

PATIENT
  Sex: Female
  Weight: 72.562 kg

DRUGS (1)
  1. ALAVERT [Suspect]
     Indication: VERTIGO
     Dosage: 10 MG, 1X/DAY
     Route: 048
     Dates: start: 20120724, end: 20120728

REACTIONS (5)
  - FEELING ABNORMAL [None]
  - OFF LABEL USE [None]
  - BLOOD PRESSURE INCREASED [None]
  - FLUSHING [None]
  - MALAISE [None]
